FAERS Safety Report 10994079 (Version 4)
Quarter: 2015Q3

REPORT INFORMATION
  Report Type: Spontaneous
  Country: BR (occurrence: BR)
  Receive Date: 20150407
  Receipt Date: 20150710
  Transmission Date: 20151125
  Serious: Yes (Other)
  Sender: FDA-Public Use
  Company Number: BR-PFIZER INC-2015077123

PATIENT
  Age: 82 Year
  Sex: Female
  Weight: 64 kg

DRUGS (11)
  1. GLIFAGE XR [Concomitant]
     Active Substance: METFORMIN HYDROCHLORIDE
     Indication: BLOOD GLUCOSE ABNORMAL
     Dosage: 500 MG, 2X/DAY
     Dates: start: 2013
  2. LIPITOR [Suspect]
     Active Substance: ATORVASTATIN CALCIUM
     Indication: BLOOD CHOLESTEROL ABNORMAL
     Dosage: 1 TABLET OF 20 MG, 1X/DAY (AT NIGHT)
     Route: 048
     Dates: end: 2006
  3. CALCITRAN 3D [Concomitant]
     Indication: CALCIUM DEFICIENCY
     Dosage: 1 CAPSULE AT NIGHT
     Dates: start: 1965
  4. PYRIDOXAMINE HYDROCHLORIDE\THIAMINE HYDROCHLORIDE\CYANOCOBALAMIN [Concomitant]
     Active Substance: CYANOCOBALAMIN\PYRIDOXAMINE HYDROCHLORIDE\THIAMINE HYDROCHLORIDE
     Indication: VITAMIN SUPPLEMENTATION
     Dosage: 1 CAPSULE AFTER LUNCH
  5. LOSARTAN POTASSIUM. [Concomitant]
     Active Substance: LOSARTAN POTASSIUM
     Indication: BLOOD PRESSURE ABNORMAL
     Dosage: 1 TABLET OF 50MG, 2X/DAY (IN THE MORNING AND AT NIGHT)
     Dates: start: 1951
  6. ATENSINA [Concomitant]
     Active Substance: CLONIDINE
     Indication: BLOOD PRESSURE ABNORMAL
     Dosage: 1 TABLET OF 0.5 MG, AT NIGHT
     Dates: start: 1951
  7. ARTROLIVE [Concomitant]
     Active Substance: CHONDROITIN SULFATE (BOVINE)\GLUCOSAMINE SULFATE
     Indication: CHONDROPATHY
     Dosage: 1 CAPSULE, 2X/DAY (MORNING AND AT NIGHT)
     Dates: start: 2013
  8. GABANEURIN [Concomitant]
     Active Substance: GABAPENTIN
     Indication: PAIN
     Dosage: 300 MG, 2X/DAY (MORNING AND AT NIGHT)
  9. NATRILIX [Concomitant]
     Active Substance: INDAPAMIDE
     Indication: HYPERTENSION
     Dosage: 2.5 MG, 1X/DAY (IN THE MORNING)
     Dates: start: 1951
  10. OMEGA 3 [Concomitant]
     Active Substance: OMEGA-3 FATTY ACIDS
     Dosage: 1 CAPSULE, 1X/DAY
     Dates: start: 2011
  11. VITERGAN ZINC PLUS [Concomitant]
     Indication: VITAMIN SUPPLEMENTATION
     Dosage: 1 CAPSULE AT NIGHT
     Dates: start: 2013

REACTIONS (7)
  - Blood pressure increased [Unknown]
  - Fatigue [Unknown]
  - Vision blurred [Unknown]
  - Fall [Recovered/Resolved]
  - Corneal disorder [Unknown]
  - Visual acuity reduced [Unknown]
  - Memory impairment [Not Recovered/Not Resolved]

NARRATIVE: CASE EVENT DATE: 201505
